FAERS Safety Report 22181241 (Version 2)
Quarter: 2023Q2

REPORT INFORMATION
  Report Type: Spontaneous
  Country: AU (occurrence: AU)
  Receive Date: 20230406
  Receipt Date: 20230412
  Transmission Date: 20230721
  Serious: Yes (Life-Threatening, Hospitalization, Other)
  Sender: FDA-Public Use
  Company Number: AU-MLMSERVICE-20230328-4192436-1

PATIENT
  Age: 45 Year
  Sex: Female

DRUGS (10)
  1. OXALIPLATIN [Suspect]
     Active Substance: OXALIPLATIN
     Indication: Metastases to lymph nodes
     Dosage: UNK
  2. OXALIPLATIN [Suspect]
     Active Substance: OXALIPLATIN
     Indication: Colon cancer
  3. OXALIPLATIN [Suspect]
     Active Substance: OXALIPLATIN
     Indication: Adjuvant therapy
  4. CLOZAPINE [Suspect]
     Active Substance: CLOZAPINE
     Indication: Schizophrenia
     Dosage: 300 MG, QD (LONG TERM)
  5. FLUOROURACIL [Suspect]
     Active Substance: FLUOROURACIL
     Indication: Metastases to lymph nodes
     Dosage: UNK
  6. FLUOROURACIL [Suspect]
     Active Substance: FLUOROURACIL
     Indication: Colon cancer
  7. FLUOROURACIL [Suspect]
     Active Substance: FLUOROURACIL
     Indication: Adjuvant therapy
  8. LEUCOVORIN [Suspect]
     Active Substance: LEUCOVORIN
     Indication: Metastases to lymph nodes
     Dosage: UNK
  9. LEUCOVORIN [Suspect]
     Active Substance: LEUCOVORIN
     Indication: Adjuvant therapy
  10. LEUCOVORIN [Suspect]
     Active Substance: LEUCOVORIN
     Indication: Colon cancer

REACTIONS (12)
  - Constipation [Recovered/Resolved]
  - Septic shock [Recovered/Resolved]
  - Tachycardia [Recovered/Resolved]
  - Febrile neutropenia [Recovered/Resolved]
  - Intestinal ischaemia [Recovered/Resolved]
  - Large intestine perforation [Recovered/Resolved]
  - Rectal haemorrhage [Recovered/Resolved]
  - Pain [Recovered/Resolved]
  - Pyrexia [Recovered/Resolved]
  - Faecaloma [Recovered/Resolved]
  - Pneumoperitoneum [Recovered/Resolved]
  - Gastrointestinal necrosis [Recovered/Resolved]
